FAERS Safety Report 23552400 (Version 2)
Quarter: 2024Q1

REPORT INFORMATION
  Report Type: Spontaneous
  Country: DE (occurrence: DE)
  Receive Date: 20240222
  Receipt Date: 20240322
  Transmission Date: 20240410
  Serious: Yes (Hospitalization, Other)
  Sender: FDA-Public Use
  Company Number: DE-BFARM-24000949

PATIENT
  Age: 25 Year
  Sex: Female

DRUGS (6)
  1. LUVERIS [Suspect]
     Active Substance: LUTROPIN ALFA
     Indication: Assisted reproductive technology
  2. TRIPTORELIN ACETATE [Suspect]
     Active Substance: TRIPTORELIN ACETATE
     Indication: Assisted reproductive technology
  3. CORIFOLLITROPIN ALFA [Suspect]
     Active Substance: CORIFOLLITROPIN ALFA
     Indication: Assisted reproductive technology
  4. FOLLITROPIN BETA [Suspect]
     Active Substance: FOLLITROPIN BETA
     Indication: Assisted reproductive technology
  5. GANIRELIX [Suspect]
     Active Substance: GANIRELIX
     Indication: Assisted reproductive technology
  6. HEPARIN [Concomitant]
     Active Substance: HEPARIN SODIUM
     Indication: Product used for unknown indication

REACTIONS (3)
  - Ascites [Unknown]
  - Pleural effusion [Unknown]
  - Ovarian hyperstimulation syndrome [Recovered/Resolved]

NARRATIVE: CASE EVENT DATE: 20240129
